FAERS Safety Report 11910796 (Version 2)
Quarter: 2016Q1

REPORT INFORMATION
  Report Type: Report from Study
  Country: US (occurrence: US)
  Receive Date: 20160112
  Receipt Date: 20160121
  Transmission Date: 20160526
  Serious: Yes (Hospitalization)
  Sender: FDA-Public Use
  Company Number: US-ELI_LILLY_AND_COMPANY-US201512008902

PATIENT
  Age: 74 Year
  Sex: Female
  Weight: 59.9 kg

DRUGS (13)
  1. POTASSIUM CHLORIDE. [Concomitant]
     Active Substance: POTASSIUM CHLORIDE
     Indication: DIABETES MELLITUS
     Dosage: UNK
     Dates: start: 20151214, end: 20151220
  2. DEXAMETHASONE. [Concomitant]
     Active Substance: DEXAMETHASONE
     Indication: PROPHYLAXIS
     Dosage: UNK
     Dates: start: 20151228
  3. VALSARTAN. [Concomitant]
     Active Substance: VALSARTAN
     Indication: HYPERTENSION
     Dosage: UNK
     Dates: start: 1995
  4. SPIRIVA [Concomitant]
     Active Substance: TIOTROPIUM BROMIDE MONOHYDRATE
     Indication: CHRONIC OBSTRUCTIVE PULMONARY DISEASE
     Dosage: UNK
     Dates: start: 2014
  5. LEVEMIR [Concomitant]
     Active Substance: INSULIN DETEMIR
     Indication: DIABETES MELLITUS
     Dosage: UNK
     Dates: start: 1995
  6. ALBUTEROL SULFATE. [Concomitant]
     Active Substance: ALBUTEROL SULFATE
     Indication: CHRONIC OBSTRUCTIVE PULMONARY DISEASE
     Dosage: UNK
     Dates: start: 2014
  7. PALONOSETRON [Concomitant]
     Active Substance: PALONOSETRON
     Indication: PROPHYLAXIS
     Dosage: UNK
     Dates: start: 20151228
  8. ATORVASTATIN [Concomitant]
     Active Substance: ATORVASTATIN
     Indication: DYSLIPIDAEMIA
     Dosage: UNK
     Dates: start: 1995
  9. ATENOLOL. [Concomitant]
     Active Substance: ATENOLOL
     Indication: HYPERTENSION
     Dosage: UNK
     Dates: start: 1995
  10. NOVOLOG [Concomitant]
     Active Substance: INSULIN ASPART
     Indication: DIABETES MELLITUS
     Dosage: UNK
     Dates: start: 1995
  11. DIPHENHYDRAMINE. [Concomitant]
     Active Substance: DIPHENHYDRAMINE
     Indication: PROPHYLAXIS
     Dosage: UNK
     Dates: start: 20151228
  12. NECITUMUMAB [Suspect]
     Active Substance: NECITUMUMAB
     Indication: NON-SMALL CELL LUNG CANCER
     Dosage: 800 MG, CYCLICAL
     Route: 042
     Dates: start: 20151228, end: 20151228
  13. ASPIRIN                            /00002701/ [Concomitant]
     Active Substance: ASPIRIN
     Indication: HYPERTENSION
     Dosage: UNK
     Dates: start: 1995

REACTIONS (1)
  - Hypersensitivity [Recovered/Resolved]

NARRATIVE: CASE EVENT DATE: 20151228
